FAERS Safety Report 24973245 (Version 9)
Quarter: 2025Q2

REPORT INFORMATION
  Report Type: Report from Study
  Country: US (occurrence: US)
  Receive Date: 20250216
  Receipt Date: 20250617
  Transmission Date: 20250717
  Serious: Yes (Hospitalization, Other)
  Sender: UCB
  Company Number: US-UCBSA-2025008091

PATIENT
  Sex: Female
  Weight: 42 kg

DRUGS (8)
  1. FINTEPLA [Suspect]
     Active Substance: FENFLURAMINE
     Indication: Seizure
     Dosage: 3 MILLILITER, 2X/DAY (BID)
     Dates: start: 20240305
  2. FINTEPLA [Suspect]
     Active Substance: FENFLURAMINE
     Indication: Severe myoclonic epilepsy of infancy
     Dosage: 3 MILLILITER, 2X/DAY (BID)
  3. CLOBAZAM [Concomitant]
     Active Substance: CLOBAZAM
     Indication: Seizure
     Dosage: 15 MILLIGRAM, ONCE DAILY (QD) (1.5 TABLET QHS)
  4. DIACOMIT [Concomitant]
     Active Substance: STIRIPENTOL
     Indication: Seizure
     Dosage: UNK, 2X/DAY (BID) (500 MG 2 PACKETS TWICE A DAY)
     Route: 048
     Dates: start: 20190430
  5. LEVETIRACETAM [Concomitant]
     Active Substance: LEVETIRACETAM
     Indication: Product used for unknown indication
     Dosage: 750 MILLIGRAM, 2X/DAY (BID)
     Route: 048
     Dates: start: 20131012
  6. PHENOBARBITAL [Concomitant]
     Active Substance: PHENOBARBITAL
     Indication: Product used for unknown indication
     Dosage: 129.6 MILLIGRAM, ONCE DAILY (QD)
     Route: 048
     Dates: start: 20130807
  7. KETOCAL [Concomitant]
     Indication: Product used for unknown indication
  8. LEVOCARNITINE [Concomitant]
     Active Substance: LEVOCARNITINE
     Indication: Product used for unknown indication
     Dosage: 330 MILLIGRAM, ONCE DAILY (QD)
     Dates: start: 20150904

REACTIONS (5)
  - Seizure [Recovering/Resolving]
  - Pulmonary valve incompetence [Not Recovered/Not Resolved]
  - Pericardial effusion [Not Recovered/Not Resolved]
  - Gastroenteritis viral [Recovered/Resolved]
  - Dehydration [Recovered/Resolved]

NARRATIVE: CASE EVENT DATE: 20250101
